FAERS Safety Report 19360965 (Version 1)
Quarter: 2021Q2

REPORT INFORMATION
  Report Type: Spontaneous
  Country: US (occurrence: US)
  Receive Date: 20210601
  Receipt Date: 20210601
  Transmission Date: 20210717
  Serious: Yes (Hospitalization, Other)
  Sender: FDA-Public Use
  Company Number: US-RECKITT BENCKISER HEALTHCARE INT LIMITED-RB-87957-2021

PATIENT
  Age: 2 Year
  Sex: Female

DRUGS (1)
  1. DELSYM [Suspect]
     Active Substance: DEXTROMETHORPHAN
     Indication: PRODUCT USED FOR UNKNOWN INDICATION
     Dosage: UNK
     Route: 048

REACTIONS (5)
  - Tachycardia [Recovered/Resolved]
  - Hyporesponsive to stimuli [Recovered/Resolved]
  - Accidental exposure to product [Recovered/Resolved]
  - Nystagmus [Recovered/Resolved]
  - Agitation [Recovered/Resolved]
